FAERS Safety Report 23997627 (Version 1)
Quarter: 2024Q2

REPORT INFORMATION
  Report Type: Report from Study
  Country: US (occurrence: US)
  Receive Date: 20240621
  Receipt Date: 20240621
  Transmission Date: 20240716
  Serious: Yes (Other)
  Sender: FDA-Public Use
  Company Number: US-ABBVIE-5802879

PATIENT
  Sex: Female

DRUGS (1)
  1. HUMIRA [Suspect]
     Active Substance: ADALIMUMAB
     Indication: Hidradenitis
     Route: 058
     Dates: start: 20210220, end: 202406

REACTIONS (7)
  - Haemorrhagic breast cyst [Recovering/Resolving]
  - Breast pain [Recovering/Resolving]
  - Purulence [Recovering/Resolving]
  - Haemorrhagic breast cyst [Unknown]
  - Breast pain [Unknown]
  - Purulence [Unknown]
  - Rash [Unknown]

NARRATIVE: CASE EVENT DATE: 20230101
